FAERS Safety Report 14098984 (Version 6)
Quarter: 2025Q2

REPORT INFORMATION
  Report Type: Spontaneous
  Country: FR (occurrence: FR)
  Receive Date: 20171017
  Receipt Date: 20250626
  Transmission Date: 20250716
  Serious: Yes (Death, Life-Threatening, Hospitalization, Other)
  Sender: SANOFI AVENTIS
  Company Number: None

PATIENT
  Age: 77 Year
  Sex: Male
  Weight: 81 kg

DRUGS (10)
  1. CEFAZOLIN [Interacting]
     Active Substance: CEFAZOLIN
     Indication: Endocarditis staphylococcal
     Dosage: 6 G, QD
     Route: 042
  2. RIFAMPIN [Interacting]
     Active Substance: RIFAMPIN
     Indication: Endocarditis staphylococcal
  3. RIFAMPIN [Interacting]
     Active Substance: RIFAMPIN
     Dosage: 600 MG, BID
  4. LOVENOX [Suspect]
     Active Substance: ENOXAPARIN SODIUM
     Indication: Thrombosis prophylaxis
     Route: 058
     Dates: start: 20161005, end: 20161005
  5. KARDEGIC [Suspect]
     Active Substance: ASPIRIN DL-LYSINE
     Indication: Thrombosis prophylaxis
     Route: 048
     Dates: start: 20160929, end: 20161017
  6. OXACILLIN [Concomitant]
     Active Substance: OXACILLIN SODIUM
     Indication: Endocarditis bacterial
  7. TAHOR [Concomitant]
     Active Substance: ATORVASTATIN CALCIUM
  8. LEVOTHYROXINE SODIUM [Concomitant]
     Active Substance: LEVOTHYROXINE SODIUM
  9. ESOMEPRAZOLE MAGNESIUM [Concomitant]
     Active Substance: ESOMEPRAZOLE MAGNESIUM
  10. DAFALGAN [Concomitant]
     Active Substance: ACETAMINOPHEN

REACTIONS (11)
  - Cardiogenic shock [Fatal]
  - Shock haemorrhagic [Fatal]
  - Vitamin K decreased [Not Recovered/Not Resolved]
  - Hypovitaminosis [Unknown]
  - Coagulation factor VII level decreased [Not Recovered/Not Resolved]
  - Coagulation factor X level decreased [Not Recovered/Not Resolved]
  - Hypoprothrombinaemia [Unknown]
  - Prothrombin level decreased [Not Recovered/Not Resolved]
  - Pericardial haemorrhage [Unknown]
  - Haemoglobin decreased [Not Recovered/Not Resolved]
  - Drug interaction [Unknown]
